FAERS Safety Report 9703372 (Version 2)
Quarter: 2014Q1

REPORT INFORMATION
  Report Type: Report from Study
  Country: US (occurrence: US)
  Receive Date: 20131122
  Receipt Date: 20140106
  Transmission Date: 20141002
  Serious: No
  Sender: FDA-Public Use
  Company Number: PHHO2013US015178

PATIENT
  Age: 64 Year
  Sex: Female
  Weight: 84.36 kg

DRUGS (7)
  1. ZOLEDRONATE [Suspect]
     Indication: BREAST CANCER
     Dosage: 4 MG, UNK
     Route: 042
     Dates: start: 20090821
  2. GLIPIZIDE [Concomitant]
  3. OMEPRAZOLE [Concomitant]
  4. LETROZOLE [Concomitant]
  5. MEGACE [Concomitant]
     Dosage: UNK
  6. LISINOPRIL [Concomitant]
  7. PROZAC [Concomitant]

REACTIONS (1)
  - Osteonecrosis of jaw [Not Recovered/Not Resolved]
